FAERS Safety Report 19048240 (Version 1)
Quarter: 2021Q1

REPORT INFORMATION
  Report Type: Report from Study
  Country: CO (occurrence: CO)
  Receive Date: 20210323
  Receipt Date: 20210323
  Transmission Date: 20210420
  Serious: Yes (Life-Threatening)
  Sender: FDA-Public Use
  Company Number: CO-TAKEDA-2021TUS018433

PATIENT
  Age: 20 Year
  Sex: Male
  Weight: 72 kg

DRUGS (2)
  1. ICATIBANT [Suspect]
     Active Substance: ICATIBANT ACETATE
     Indication: HEREDITARY ANGIOEDEMA
     Dosage: 30 MILLIGRAM, EVERY 6 HOURS IF THE DISEASE PERSISTS
     Dates: start: 20210315
  2. ICATIBANT [Suspect]
     Active Substance: ICATIBANT ACETATE
     Indication: HEREDITARY ANGIOEDEMA
     Dosage: 30 MILLIGRAM, EVERY 6 HOURS IF THE DISEASE PERSISTS
     Dates: start: 20210315

REACTIONS (3)
  - Pain [Recovered/Resolved]
  - Dyspnoea [Recovered/Resolved]
  - Product storage error [Unknown]

NARRATIVE: CASE EVENT DATE: 20210315
